FAERS Safety Report 18335122 (Version 2)
Quarter: 2020Q4

REPORT INFORMATION
  Report Type: Spontaneous
  Country: US (occurrence: US)
  Receive Date: 20201001
  Receipt Date: 20201013
  Transmission Date: 20210113
  Serious: Yes (Other)
  Sender: FDA-Public Use
  Company Number: US-MALLINCKRODT-T202004745

PATIENT
  Sex: Male
  Weight: 9 kg

DRUGS (5)
  1. H.P. ACTHAR [Suspect]
     Active Substance: CORTICOTROPIN
     Dosage: 0.06 ML (4.8 UNITS) DAILY FOR 3 DAYS
     Route: 030
     Dates: start: 2020, end: 2020
  2. H.P. ACTHAR [Suspect]
     Active Substance: CORTICOTROPIN
     Indication: INFANTILE SPASMS
     Dosage: 0.41 ML (32.8 UNITS) TWICE A DAY FOR 14 DAYS
     Route: 030
     Dates: start: 2020, end: 2020
  3. H.P. ACTHAR [Suspect]
     Active Substance: CORTICOTROPIN
     Dosage: 0.08 ML (6.4 UNITS) DAILY FOR 3 DAYS
     Route: 030
     Dates: start: 2020, end: 2020
  4. H.P. ACTHAR [Suspect]
     Active Substance: CORTICOTROPIN
     Dosage: 0.17 ML (13.6 UNITS) DAILY FOR 3 DAYS
     Route: 030
     Dates: start: 2020, end: 2020
  5. H.P. ACTHAR [Suspect]
     Active Substance: CORTICOTROPIN
     Dosage: 0.06ML (4.8 UNITS) EVERY OTHER DAY FOR 6 DAYS
     Route: 030
     Dates: start: 2020

REACTIONS (6)
  - Seizure [Unknown]
  - Infantile spasms [Recovering/Resolving]
  - Irritability [Unknown]
  - Condition aggravated [Recovering/Resolving]
  - Insomnia [Unknown]
  - Product dose omission issue [Recovered/Resolved]

NARRATIVE: CASE EVENT DATE: 2020
